FAERS Safety Report 13242601 (Version 1)
Quarter: 2017Q1

REPORT INFORMATION
  Report Type: Spontaneous
  Country: US (occurrence: US)
  Receive Date: 20170216
  Receipt Date: 20170216
  Transmission Date: 20170428
  Serious: No
  Sender: FDA-Public Use
  Company Number: None

PATIENT
  Age: 77 Year
  Sex: Male

DRUGS (2)
  1. ZYTIGA [Suspect]
     Active Substance: ABIRATERONE ACETATE
     Indication: PROSTATE CANCER
     Dosage: 4 TABLETS ONCE DAILY BY MOUTH
     Route: 048
     Dates: start: 20150829
  2. ZYTIGA [Suspect]
     Active Substance: ABIRATERONE ACETATE
     Indication: METASTASES TO BONE
     Dosage: 4 TABLETS ONCE DAILY BY MOUTH
     Route: 048
     Dates: start: 20150829

REACTIONS (3)
  - Dyskinesia [None]
  - Intra-abdominal fluid collection [None]
  - Waist circumference increased [None]

NARRATIVE: CASE EVENT DATE: 20170114
